FAERS Safety Report 18231658 (Version 6)
Quarter: 2021Q1

REPORT INFORMATION
  Report Type: Report from Study
  Country: JP (occurrence: JP)
  Receive Date: 20200904
  Receipt Date: 20210212
  Transmission Date: 20210419
  Serious: Yes (Hospitalization)
  Sender: FDA-Public Use
  Company Number: NVSJ2020JP008368

PATIENT
  Age: 15 Year
  Sex: Male
  Weight: 29.6 kg

DRUGS (23)
  1. ILARIS [Suspect]
     Active Substance: CANAKINUMAB
     Indication: STILL^S DISEASE
     Dosage: UNK
     Route: 058
     Dates: start: 20190725
  2. PREDNISOLONE. [Concomitant]
     Active Substance: PREDNISOLONE
     Dosage: 30 MG
     Route: 048
     Dates: start: 20200821
  3. ILARIS [Suspect]
     Active Substance: CANAKINUMAB
     Dosage: 108 MG
     Route: 058
     Dates: start: 20200305
  4. ILARIS [Suspect]
     Active Substance: CANAKINUMAB
     Dosage: 108 MG
     Route: 058
     Dates: start: 20200403
  5. ILARIS [Suspect]
     Active Substance: CANAKINUMAB
     Dosage: 101 MG
     Route: 058
     Dates: start: 20200109
  6. ILARIS [Suspect]
     Active Substance: CANAKINUMAB
     Dosage: 114 MG
     Route: 058
     Dates: start: 20200622
  7. ILARIS [Suspect]
     Active Substance: CANAKINUMAB
     Dosage: 120 MG
     Route: 058
     Dates: start: 20200923
  8. ILARIS [Suspect]
     Active Substance: CANAKINUMAB
     Dosage: 96 MG
     Route: 058
     Dates: start: 20191028
  9. ILARIS [Suspect]
     Active Substance: CANAKINUMAB
     Dosage: 101 MG
     Route: 058
     Dates: start: 20200205
  10. ILARIS [Suspect]
     Active Substance: CANAKINUMAB
     Dosage: 120 MG
     Route: 058
     Dates: start: 20201021
  11. ILARIS [Suspect]
     Active Substance: CANAKINUMAB
     Dosage: 133 MG
     Route: 058
     Dates: start: 20201214
  12. ILARIS [Suspect]
     Active Substance: CANAKINUMAB
     Dosage: 114 MG
     Route: 058
     Dates: start: 20200525
  13. ILARIS [Suspect]
     Active Substance: CANAKINUMAB
     Dosage: 114 MG
     Route: 058
     Dates: start: 20200722
  14. ILARIS [Suspect]
     Active Substance: CANAKINUMAB
     Dosage: 135 MG
     Route: 058
     Dates: start: 20210113
  15. ILARIS [Suspect]
     Active Substance: CANAKINUMAB
     Dosage: 96 MG
     Route: 058
     Dates: start: 20191113
  16. ILARIS [Suspect]
     Active Substance: CANAKINUMAB
     Dosage: 120 MG
     Route: 058
     Dates: start: 20200825
  17. ILARIS [Suspect]
     Active Substance: CANAKINUMAB
     Dosage: 120 MG
     Route: 058
     Dates: start: 20201118
  18. ILARIS [Suspect]
     Active Substance: CANAKINUMAB
     Dosage: 135 MG
     Route: 058
     Dates: start: 20210210
  19. PREDNISOLONE. [Concomitant]
     Active Substance: PREDNISOLONE
     Dosage: 3 MG, QD
     Route: 048
     Dates: start: 20191028
  20. ILARIS [Suspect]
     Active Substance: CANAKINUMAB
     Dosage: 96 MG
     Route: 058
     Dates: start: 20191213
  21. ILARIS [Suspect]
     Active Substance: CANAKINUMAB
     Dosage: 108 MG
     Route: 058
     Dates: start: 20200427
  22. PREDNISOLONE. [Concomitant]
     Active Substance: PREDNISOLONE
     Indication: INFLAMMATION
     Dosage: UNK
     Route: 048
     Dates: start: 20170417
  23. TACROLIMUS. [Concomitant]
     Active Substance: TACROLIMUS
     Indication: STILL^S DISEASE
     Dosage: 1 MG
     Route: 048
     Dates: start: 20170417, end: 20200323

REACTIONS (6)
  - Disease progression [Recovered/Resolved]
  - Pyrexia [Recovering/Resolving]
  - Haemophagocytic lymphohistiocytosis [Recovered/Resolved]
  - Rash [Recovering/Resolving]
  - Still^s disease [Recovered/Resolved]
  - Arthralgia [Unknown]

NARRATIVE: CASE EVENT DATE: 20200816
